FAERS Safety Report 8772575 (Version 1)
Quarter: 2012Q4

REPORT INFORMATION
  Report Type: 
  Country: IE (occurrence: IE)
  Receive Date: 20120905
  Receipt Date: 20120905
  Transmission Date: 20130627
  Serious: Yes (Congenital Anomaly)
  Sender: FDA-Public Use
  Company Number: IE-US-EMD SERONO, INC.-7158384

PATIENT
  Sex: Female

DRUGS (2)
  1. GONAL-F [Suspect]
     Route: 064
  2. OVITRELLE [Suspect]
     Route: 064

REACTIONS (2)
  - Anencephaly [Unknown]
  - Foetal exposure during pregnancy [Unknown]
